FAERS Safety Report 25604699 (Version 1)
Quarter: 2025Q3

REPORT INFORMATION
  Report Type: Spontaneous
  Country: EU (occurrence: EU)
  Receive Date: 20250725
  Receipt Date: 20250725
  Transmission Date: 20251021
  Serious: Yes (Other)
  Sender: AUROBINDO
  Company Number: EU-AEMPS-1722561

PATIENT
  Age: 88 Year
  Sex: Male
  Weight: 120 kg

DRUGS (1)
  1. METRONIDAZOLE [Suspect]
     Active Substance: METRONIDAZOLE
     Indication: Infection
     Dosage: 250 MILLIGRAM, FOUR TIMES/DAY
     Route: 048
     Dates: start: 20250615, end: 20250616

REACTIONS (2)
  - Jaundice [Recovered/Resolved]
  - Choluria [Recovered/Resolved]

NARRATIVE: CASE EVENT DATE: 20250616
